FAERS Safety Report 24624485 (Version 1)
Quarter: 2024Q4

REPORT INFORMATION
  Report Type: Spontaneous
  Country: NZ (occurrence: NZ)
  Receive Date: 20241115
  Receipt Date: 20241115
  Transmission Date: 20250115
  Serious: Yes (Death, Hospitalization)
  Sender: BAXTER
  Company Number: NZ-BAXTER-2024BAX027702

PATIENT

DRUGS (2)
  1. SODIUM CHLORIDE [Suspect]
     Active Substance: SODIUM CHLORIDE
     Indication: Medication dilution
     Dosage: CETUXIMAB IN 500 ML NACL, UNSPECIFIED FREQUENCY
     Route: 065
  2. ERBITUX [Suspect]
     Active Substance: CETUXIMAB
     Dosage: CETUXIMAB 1045 MG IN 500 ML NACL, UNSPECIFIED FREQUENCY
     Route: 065

REACTIONS (1)
  - Infusion related reaction [Fatal]
